FAERS Safety Report 7586364-9 (Version None)
Quarter: 2011Q3

REPORT INFORMATION
  Report Type: 
  Country: None (occurrence: None)
  Receive Date: 20110701
  Receipt Date: 20110610
  Transmission Date: 20111222
  Serious: Yes (Death, Hospitalization)
  Sender: FDA-Public Use
  Company Number: A0785175A

PATIENT
  Age: 57 Year
  Sex: Male

DRUGS (9)
  1. NEXIUM [Concomitant]
  2. SPIRIVA [Concomitant]
  3. GABAPENTIN [Concomitant]
  4. DILANTIN [Concomitant]
  5. FLURAZEPAM [Concomitant]
  6. METHADONE HCL [Concomitant]
  7. CRESTOR [Concomitant]
  8. AVANDIA [Suspect]
     Indication: DIABETES MELLITUS
     Dosage: 8MG UNKNOWN
     Route: 048
     Dates: end: 20060502
  9. INSULIN [Concomitant]

REACTIONS (4)
  - MYOCARDIAL INFARCTION [None]
  - DEATH [None]
  - CARDIO-RESPIRATORY ARREST [None]
  - CARDIAC DISORDER [None]
